FAERS Safety Report 4335772-8 (Version None)
Quarter: 2004Q2

REPORT INFORMATION
  Report Type: 
  Country: None (occurrence: None)
  Receive Date: 20040408
  Receipt Date: 20040330
  Transmission Date: 20050107
  Serious: Yes (Hospitalization)
  Sender: FDA-Public Use
  Company Number: 04-03-0467

PATIENT
  Age: 53 Year
  Sex: Female

DRUGS (1)
  1. CLOZAPINE [Suspect]
     Dosage: 400MG QD ORAL
     Route: 048
     Dates: start: 20030501

REACTIONS (4)
  - DISEASE RECURRENCE [None]
  - INTESTINAL PERFORATION [None]
  - PSYCHOTIC DISORDER [None]
  - VOLVULUS OF BOWEL [None]
